FAERS Safety Report 10396858 (Version 1)
Quarter: 2014Q1

REPORT INFORMATION
  Report Type: Spontaneous
  Country: US (occurrence: None)
  Receive Date: 20130815
  Receipt Date: 20130815
  Transmission Date: 20141002
  Serious: Yes (Other)
  Sender: FDA-Public Use
  Company Number: ADR-2013-00435

PATIENT
  Age: 21 Year
  Sex: Male

DRUGS (2)
  1. LIORESAL INTRATHECAL (BACLOFEN INJECTION)2000 MCG/ML [Suspect]
     Indication: MUSCLE SPASTICITY
     Dosage: 96.1 /DAY
  2. IV AND ORAL ANTIBIOTICS (NOT SPECIFIED) [Concomitant]

REACTIONS (11)
  - Implant site infection [None]
  - Implant site erythema [None]
  - Implant site oedema [None]
  - Implant site discharge [None]
  - Culture wound positive [None]
  - CSF culture positive [None]
  - Staphylococcus test positive [None]
  - Staphylococcal infection [None]
  - Drug withdrawal syndrome [None]
  - Hypertonia [None]
  - Hyperhidrosis [None]
